FAERS Safety Report 9335101 (Version 1)
Quarter: 2013Q2

REPORT INFORMATION
  Report Type: Spontaneous
  Country: DE (occurrence: DE)
  Receive Date: 20130606
  Receipt Date: 20130606
  Transmission Date: 20140414
  Serious: Yes (Other)
  Sender: FDA-Public Use
  Company Number: DE-SANOFI-AVENTIS-2013SA054520

PATIENT
  Age: 73 Year
  Sex: Male

DRUGS (1)
  1. ARAVA [Suspect]
     Indication: RHEUMATIC DISORDER
     Route: 048
     Dates: start: 2008

REACTIONS (1)
  - Scleritis [Not Recovered/Not Resolved]
